FAERS Safety Report 13820087 (Version 1)
Quarter: 2017Q3

REPORT INFORMATION
  Report Type: Spontaneous
  Country: US (occurrence: US)
  Receive Date: 20170801
  Receipt Date: 20170801
  Transmission Date: 20171127
  Serious: Yes (Other)
  Sender: FDA-Public Use
  Company Number: US-BAUSCH-BL-2017-022321

PATIENT
  Age: 71 Year
  Sex: Female

DRUGS (2)
  1. ZINC. [Suspect]
     Active Substance: ZINC
     Indication: PRODUCT USED FOR UNKNOWN INDICATION
     Route: 065
  2. ZINC. [Suspect]
     Active Substance: ZINC
     Route: 065

REACTIONS (3)
  - Copper deficiency [Unknown]
  - Hypoglycaemia [Recovered/Resolved]
  - Wernicke^s encephalopathy [Unknown]
